FAERS Safety Report 6626661-4 (Version None)
Quarter: 2010Q1

REPORT INFORMATION
  Report Type: 
  Country: None (occurrence: None)
  Receive Date: 20100305
  Receipt Date: 20100218
  Transmission Date: 20100710
  Serious: Yes (Death, Congenital Anomaly)
  Sender: FDA-Public Use
  Company Number: CIP10000380

PATIENT

DRUGS (16)
  1. FURADANTIN [Suspect]
     Dosage: TRANSPLACENTAL
     Route: 064
     Dates: start: 20091001
  2. AMYCOR /00806601/ (BIFONAZOLE) [Suspect]
     Dosage: TRANSPLACENTAL
     Route: 064
  3. GENTAMICIN SULFATE [Suspect]
     Dosage: 80 MG DAILY, TRANSPLACENTAL
     Route: 064
     Dates: start: 20090828, end: 20090901
  4. MICONAZOLE NITRATE [Suspect]
     Dosage: TRANSPLACENTAL
     Route: 064
  5. HOMEOPATIC PREPARATION [Concomitant]
  6. CRANBERRY /01512301/ (VACCINIUM MACROCARPON) [Concomitant]
  7. MULTIVITAMINS WITH MINERALS /90003801/ [Concomitant]
  8. PULSATILLA (PULSATILLA PRATENSIS) [Concomitant]
  9. PHOSPHORUS (PHOSPHORUS) [Concomitant]
  10. OPIUM DERIVATIVES AND EXPECTORANTS [Concomitant]
  11. PYROGENIUM (HOMEOPATICS NOS) [Concomitant]
  12. PLACENTA (PLACENTA) [Concomitant]
  13. ARNICA /01006901/ (ARNICA MONTANA) [Concomitant]
  14. HAMAMELIS /01376403/ (HAMAMELIS VIRGINIANA LIQUID EXTRACT) [Concomitant]
  15. MERCURIUS SOLUBILIS OLIGOPLEX (MERCURIC NITRATE, SODIUM NITRATE) [Concomitant]
  16. CALCAREA PHOSPHORICA (CALCIUM PHOSPHATE) [Concomitant]

REACTIONS (6)
  - ABORTION INDUCED [None]
  - FOETAL DISORDER [None]
  - INTRAUTERINE INFECTION [None]
  - MATERNAL DRUGS AFFECTING FOETUS [None]
  - PULMONARY HYPOPLASIA [None]
  - SKULL MALFORMATION [None]
